FAERS Safety Report 16860252 (Version 1)
Quarter: 2019Q3

REPORT INFORMATION
  Report Type: Spontaneous
  Country: US (occurrence: US)
  Receive Date: 20190805
  Receipt Date: 20190805
  Transmission Date: 20191005
  Serious: Yes (Life-Threatening, Other)
  Sender: FDA-Public Use
  Company Number: None

PATIENT
  Age: 42 Year
  Sex: Female
  Weight: 54.6 kg

DRUGS (8)
  1. PHENOBARBITAL. [Concomitant]
     Active Substance: PHENOBARBITAL
  2. TOPAMAX [Concomitant]
     Active Substance: TOPIRAMATE
  3. VIMPAT [Concomitant]
     Active Substance: LACOSAMIDE
  4. DILANTIN [Concomitant]
     Active Substance: PHENYTOIN
  5. LEVETIRACETAM 1000MG [Suspect]
     Active Substance: LEVETIRACETAM
     Indication: PARTIAL SEIZURES
     Route: 048
     Dates: start: 20190514
  6. TEGRETOL [Concomitant]
     Active Substance: CARBAMAZEPINE
  7. KEPPRA [Concomitant]
     Active Substance: LEVETIRACETAM
  8. DEPAKOTE [Concomitant]
     Active Substance: DIVALPROEX SODIUM

REACTIONS (3)
  - Partial seizures [None]
  - Product substitution issue [None]
  - Seizure cluster [None]
